FAERS Safety Report 7150829-4 (Version None)
Quarter: 2010Q4

REPORT INFORMATION
  Report Type: 
  Country: None (occurrence: None)
  Receive Date: 20101207
  Receipt Date: 20101207
  Transmission Date: 20110411
  Serious: Yes (Hospitalization)
  Sender: FDA-Public Use
  Company Number: None

PATIENT
  Age: 63 Year
  Sex: Male
  Weight: 114.12 kg

DRUGS (3)
  1. SULFAMETHOXAZOLE AND TRIMETHOPRIM [Suspect]
     Indication: CELLULITIS
     Dosage: 1 TAB BID PO
     Route: 048
     Dates: start: 20100913, end: 20100914
  2. SULFAMETHOXAZOLE AND TRIMETHOPRIM [Suspect]
     Indication: STAPHYLOCOCCAL INFECTION
     Dosage: 1 TAB BID PO
     Route: 048
     Dates: start: 20100913, end: 20100914
  3. CEPHALEXIN [Suspect]
     Indication: CELLULITIS
     Dosage: 500 MG TID PO
     Route: 048
     Dates: start: 20100913, end: 20100914

REACTIONS (2)
  - NAUSEA [None]
  - RASH [None]
